FAERS Safety Report 10257652 (Version 1)
Quarter: 2014Q2

REPORT INFORMATION
  Report Type: Spontaneous
  Country: GB (occurrence: None)
  Receive Date: 20140620
  Receipt Date: 20140620
  Transmission Date: 20141212
  Serious: Yes (Life-Threatening)
  Sender: FDA-Public Use
  Company Number: 2396345

PATIENT
  Age: 37 Year
  Sex: Male
  Weight: 115 kg

DRUGS (14)
  1. DEXMEDETOMIDINE HYDROCHLORIDE [Suspect]
     Indication: SEDATION
     Route: 042
     Dates: start: 20140522, end: 20140523
  2. ACICLOVIR [Concomitant]
  3. ALFENTANIL [Concomitant]
  4. CIPROFLOXACIN [Concomitant]
  5. CO-TRIMOXAZOLE [Concomitant]
  6. LORAZEPAM [Concomitant]
  7. OSELTAMIVIR [Concomitant]
  8. OXYCODONE [Concomitant]
  9. POTASSIUM CHLORIDE [Concomitant]
  10. PROPOFOL [Concomitant]
  11. QUETIAPINE [Concomitant]
  12. RALTEGRAVIR [Concomitant]
  13. TAZOCIN [Concomitant]
  14. TUVADA [Concomitant]

REACTIONS (2)
  - Ventricular asystole [None]
  - Bradycardia [None]
